FAERS Safety Report 24085222 (Version 3)
Quarter: 2024Q3

REPORT INFORMATION
  Report Type: Spontaneous
  Country: US (occurrence: US)
  Receive Date: 20240712
  Receipt Date: 20240921
  Transmission Date: 20241016
  Serious: No
  Sender: ROCHE
  Company Number: US-ROCHE-10000021981

PATIENT
  Age: 70 Year
  Sex: Male
  Weight: 78.02 kg

DRUGS (4)
  1. XOLAIR [Suspect]
     Active Substance: OMALIZUMAB
     Indication: Asthma
     Dosage: ONGOING: YES
     Route: 058
     Dates: start: 201912
  2. XOLAIR [Suspect]
     Active Substance: OMALIZUMAB
     Indication: Hypersensitivity
     Dosage: ONGOING: YES, TWO 150 MG PFS AND ONE 75 MG PFS PER DOSE
     Route: 065
  3. XOLAIR [Suspect]
     Active Substance: OMALIZUMAB
     Dosage: ONGOING: YES
     Route: 058
     Dates: start: 201912
  4. LEVOTHYROXINE [Concomitant]
     Active Substance: LEVOTHYROXINE\LEVOTHYROXINE SODIUM
     Dosage: 137 MICROGRAM(S)/ SQ. METER
     Route: 048

REACTIONS (5)
  - Product dose omission issue [Unknown]
  - Off label use [Unknown]
  - No adverse event [Unknown]
  - Syringe issue [Unknown]
  - Product complaint [Unknown]

NARRATIVE: CASE EVENT DATE: 20240628
